FAERS Safety Report 5453054-8 (Version None)
Quarter: 2007Q3

REPORT INFORMATION
  Report Type: 
  Country: None (occurrence: None)
  Receive Date: 20070914
  Receipt Date: 20070912
  Transmission Date: 20080115
  Serious: Yes (Other)
  Sender: FDA-Public Use
  Company Number: ES-BOEHRINGER INGELHEIM PHARMACEUTICALS, INC.-2007-DE-05431GD

PATIENT
  Age: 34 Year
  Sex: Male

DRUGS (1)
  1. NEVIRAPINE [Suspect]
     Indication: ACQUIRED IMMUNODEFICIENCY SYNDROME

REACTIONS (4)
  - DERMATITIS EXFOLIATIVE [None]
  - HEPATITIS [None]
  - PYREXIA [None]
  - VITILIGO [None]
